FAERS Safety Report 5164048-4 (Version None)
Quarter: 2006Q4

REPORT INFORMATION
  Report Type: 
  Country: None (occurrence: None)
  Receive Date: 20061124
  Receipt Date: 20061109
  Transmission Date: 20070319
  Serious: Yes (Death)
  Sender: FDA-Public Use
  Company Number: 2006141057

PATIENT

DRUGS (3)
  1. DIPHENHYDRAMINE HCL [Suspect]
     Indication: SUICIDE ATTEMPT
  2. HYDROCODONE BITARTRATE [Suspect]
     Indication: SUICIDE ATTEMPT
  3. MUSCLE RELAXANTS (MUSCLE RELAXANTS) [Suspect]
     Indication: SUICIDE ATTEMPT

REACTIONS (2)
  - CARDIO-RESPIRATORY ARREST [None]
  - SUICIDE ATTEMPT [None]
